FAERS Safety Report 4786574-X (Version None)
Quarter: 2005Q3

REPORT INFORMATION
  Report Type: 
  Country: None (occurrence: None)
  Receive Date: 20050927
  Receipt Date: 20050603
  Transmission Date: 20060218
  Serious: No
  Sender: FDA-Public Use
  Company Number: USA050699677

PATIENT
  Age: 37 Year
  Sex: Female

DRUGS (4)
  1. STRATTERA [Suspect]
     Indication: ATTENTION DEFICIT/HYPERACTIVITY DISORDER
     Dosage: 100 MG
     Dates: start: 20050301
  2. ZOLOFT [Concomitant]
  3. EFFEXOR [Concomitant]
  4. THYROID TAB [Concomitant]

REACTIONS (4)
  - INSOMNIA [None]
  - IRRITABILITY [None]
  - MOOD SWINGS [None]
  - THINKING ABNORMAL [None]
